FAERS Safety Report 7957113-7 (Version None)
Quarter: 2011Q4

REPORT INFORMATION
  Report Type: 
  Country: None (occurrence: None)
  Receive Date: 20111205
  Receipt Date: 20111118
  Transmission Date: 20120403
  Serious: Yes (Death, Hospitalization)
  Sender: FDA-Public Use
  Company Number: US-ROCHE-1012148

PATIENT
  Age: 54 Year
  Sex: Female
  Weight: 60 kg

DRUGS (5)
  1. DIOVAN [Concomitant]
  2. LEXAPRO [Concomitant]
  3. SYNTHROID [Concomitant]
  4. AVASTIN [Suspect]
     Indication: CARCINOID TUMOUR
     Dosage: TOTAL DOSE ADMINISTERED THIS COURSE: 600 MG
     Route: 042
     Dates: start: 20100517
  5. TEMSIROLIMUS [Suspect]
     Indication: CARCINOID TUMOUR
     Dosage: TOTAL DOSE ADMINISTERED THIS COURSE: 25 MG
     Route: 042
     Dates: start: 20110517

REACTIONS (3)
  - DEATH [None]
  - POSTERIOR REVERSIBLE ENCEPHALOPATHY SYNDROME [None]
  - CEREBROVASCULAR ACCIDENT [None]
